FAERS Safety Report 12761589 (Version 1)
Quarter: 2016Q3

REPORT INFORMATION
  Report Type: Report from Study
  Country: BR (occurrence: BR)
  Receive Date: 20160920
  Receipt Date: 20160920
  Transmission Date: 20161109
  Serious: Yes (Other)
  Sender: FDA-Public Use
  Company Number: PHHY2016BR128494

PATIENT
  Sex: Female
  Weight: 80 kg

DRUGS (1)
  1. ACLASTA [Suspect]
     Active Substance: ZOLEDRONIC ACID
     Indication: OSTEOPOROSIS
     Dosage: 5 MG, Q12MO
     Route: 042

REACTIONS (5)
  - Weight increased [Unknown]
  - Hypokinesia [Unknown]
  - Pain [Unknown]
  - Osteitis deformans [Unknown]
  - Osteoarthritis [Unknown]
